FAERS Safety Report 8180239-2 (Version None)
Quarter: 2012Q1

REPORT INFORMATION
  Report Type: 
  Country: None (occurrence: None)
  Receive Date: 20120302
  Receipt Date: 20101026
  Transmission Date: 20120608
  Serious: No
  Sender: FDA-Public Use
  Company Number: US-GLAXOSMITHKLINE-A0847357A

PATIENT
  Age: 67 Year
  Sex: Female

DRUGS (1)
  1. OLUX E [Suspect]
     Indication: PRODUCT USED FOR UNKNOWN INDICATION
     Route: 061
     Dates: start: 20100203, end: 20100301

REACTIONS (3)
  - PRODUCT QUALITY ISSUE [None]
  - SKIN DISORDER [None]
  - SKIN IRRITATION [None]
